FAERS Safety Report 8922381 (Version 2)
Quarter: 2014Q1

REPORT INFORMATION
  Report Type: Spontaneous
  Country: JP (occurrence: JP)
  Receive Date: 20121126
  Receipt Date: 20140312
  Transmission Date: 20141002
  Serious: Yes (Other)
  Sender: FDA-Public Use
  Company Number: JP-JNJFOC-20121111554

PATIENT
  Age: 81 Year
  Sex: Male

DRUGS (4)
  1. REMINYL [Suspect]
     Indication: DEMENTIA
     Route: 048
     Dates: start: 20120117, end: 201201
  2. REMINYL [Suspect]
     Indication: DEMENTIA
     Route: 048
     Dates: start: 20111108, end: 20111205
  3. REMINYL [Suspect]
     Indication: DEMENTIA
     Route: 048
     Dates: start: 20111206, end: 20120116
  4. REMINYL [Suspect]
     Indication: DEMENTIA
     Route: 048
     Dates: start: 201201

REACTIONS (1)
  - Altered state of consciousness [Recovered/Resolved]
